FAERS Safety Report 7246893-4 (Version None)
Quarter: 2011Q1

REPORT INFORMATION
  Report Type: 
  Country: None (occurrence: None)
  Receive Date: 20110127
  Receipt Date: 20110124
  Transmission Date: 20110831
  Serious: Yes (Hospitalization)
  Sender: FDA-Public Use
  Company Number: PHHO2011NL00553

PATIENT
  Sex: Male

DRUGS (2)
  1. PREDNISOLONE [Concomitant]
     Dosage: UNK
     Dates: start: 20090107
  2. CERTICAN [Suspect]
     Indication: RENAL TRANSPLANT
     Dosage: 1.5 MG, BID
     Route: 048
     Dates: start: 20100420, end: 20110105

REACTIONS (5)
  - CHEST PAIN [None]
  - DYSPNOEA [None]
  - PYREXIA [None]
  - PNEUMONIA [None]
  - PULMONARY EMBOLISM [None]
